FAERS Safety Report 6745810-0 (Version None)
Quarter: 2010Q2

REPORT INFORMATION
  Report Type: 
  Country: None (occurrence: None)
  Receive Date: 20100528
  Receipt Date: 20100521
  Transmission Date: 20101027
  Serious: Yes (Hospitalization)
  Sender: FDA-Public Use
  Company Number: DE-NOVOPROD-305343

PATIENT
  Sex: Female
  Weight: 75 kg

DRUGS (5)
  1. VICTOZA [Suspect]
     Indication: DIABETES MELLITUS
     Dosage: 0.6 IU, QD
     Route: 058
     Dates: start: 20091006, end: 20091217
  2. VICTOZA [Suspect]
     Dosage: UNK
     Route: 058
     Dates: start: 20091218, end: 20100218
  3. TORSEMIDE [Concomitant]
     Dosage: UNK
     Route: 048
  4. SPIRO COMP [Concomitant]
     Dosage: UNK
     Route: 048
  5. IBUPROFEN [Concomitant]
     Dosage: UNK

REACTIONS (1)
  - DUODENAL ULCER [None]
